FAERS Safety Report 8116940-6 (Version None)
Quarter: 2011Q4

REPORT INFORMATION
  Report Type: 
  Country: None (occurrence: None)
  Receive Date: 20111227
  Receipt Date: 20110309
  Transmission Date: 20120403
  Serious: Yes (Other)
  Sender: FDA-Public Use
  Company Number: PHHY2011US19495

PATIENT
  Sex: Female

DRUGS (4)
  1. VITAMIN D (ERGOCLCIFEROL) [Concomitant]
  2. FEMARA [Suspect]
  3. NADOL (NADOL) [Concomitant]
  4. ACETAMINOPHEN [Concomitant]

REACTIONS (2)
  - BONE DENSITY DECREASED [None]
  - OSTEOPOROSIS [None]
